FAERS Safety Report 23643437 (Version 1)
Quarter: 2024Q1

REPORT INFORMATION
  Report Type: Spontaneous
  Country: CN (occurrence: CN)
  Receive Date: 20240318
  Receipt Date: 20240318
  Transmission Date: 20240410
  Serious: Yes (Life-Threatening, Hospitalization)
  Sender: FDA-Public Use
  Company Number: None

PATIENT
  Age: 90 Year
  Sex: Male

DRUGS (6)
  1. INSULIN GLARGINE [Suspect]
     Active Substance: INSULIN GLARGINE
     Indication: Diabetes mellitus
     Dosage: 22 IU, QD
     Route: 058
     Dates: start: 20240310, end: 20240312
  2. INSULIN GLARGINE [Suspect]
     Active Substance: INSULIN GLARGINE
     Dosage: UNK
     Dates: start: 20240312
  3. REPAGLINIDE [Concomitant]
     Active Substance: REPAGLINIDE
     Indication: Chronic kidney disease
     Dosage: 1.5 MG, QD
     Route: 048
     Dates: start: 20240311, end: 20240312
  4. REPAGLINIDE [Concomitant]
     Active Substance: REPAGLINIDE
     Indication: Cerebral infarction
  5. REPAGLINIDE [Concomitant]
     Active Substance: REPAGLINIDE
     Indication: Hypertension
  6. REPAGLINIDE [Concomitant]
     Active Substance: REPAGLINIDE
     Indication: Type 2 diabetes mellitus

REACTIONS (4)
  - Hypoglycaemia [Recovered/Resolved]
  - Hyperhidrosis [Recovered/Resolved]
  - Palpitations [Recovered/Resolved]
  - Abdominal distension [Recovered/Resolved]

NARRATIVE: CASE EVENT DATE: 20240312
